FAERS Safety Report 10245262 (Version 3)
Quarter: 2014Q3

REPORT INFORMATION
  Report Type: Report from Study
  Country: AU (occurrence: AU)
  Receive Date: 20140618
  Receipt Date: 20140731
  Transmission Date: 20150326
  Serious: Yes (Hospitalization)
  Sender: FDA-Public Use
  Company Number: AU-ROCHE-1324216

PATIENT
  Age: 61 Year
  Sex: Female
  Weight: 32 kg

DRUGS (8)
  1. RISEDRONATE [Concomitant]
     Active Substance: RISEDRONATE SODIUM
     Indication: OSTEOPOROSIS
     Route: 048
     Dates: start: 2012
  2. PREDNISOLONE. [Concomitant]
     Active Substance: PREDNISOLONE
     Dosage: IN THE MORNING
     Route: 048
     Dates: start: 1995
  3. ACTEMRA [Suspect]
     Active Substance: TOCILIZUMAB
     Dosage: 1 X 200MG AND 3 X 80MG COMBINATION VIALS.
     Route: 042
     Dates: start: 20140121, end: 20140217
  4. ACTEMRA [Suspect]
     Active Substance: TOCILIZUMAB
     Route: 042
     Dates: start: 20140325, end: 20140603
  5. LEFLUNOMIDE. [Concomitant]
     Active Substance: LEFLUNOMIDE
     Indication: RHEUMATOID ARTHRITIS
     Dosage: IN THE MORNING
     Route: 048
     Dates: start: 2000
  6. ACTEMRA [Suspect]
     Active Substance: TOCILIZUMAB
     Indication: RHEUMATOID ARTHRITIS
     Route: 042
     Dates: start: 201311
  7. ACTEMRA [Suspect]
     Active Substance: TOCILIZUMAB
     Route: 042
     Dates: start: 20140310
  8. METHOTREXATE [Concomitant]
     Active Substance: METHOTREXATE
     Indication: RHEUMATOID ARTHRITIS
     Dosage: STARTED 10 YEARS AGO; ONGOING
     Route: 048
     Dates: start: 1989

REACTIONS (7)
  - Blister infected [Recovered/Resolved]
  - Joint swelling [Not Recovered/Not Resolved]
  - Drug ineffective [Unknown]
  - Rash [Not Recovered/Not Resolved]
  - Cellulitis [Recovering/Resolving]
  - Infected skin ulcer [Recovered/Resolved]
  - Urinary tract infection [Recovering/Resolving]

NARRATIVE: CASE EVENT DATE: 20140210
